FAERS Safety Report 21280990 (Version 1)
Quarter: 2022Q3

REPORT INFORMATION
  Report Type: Spontaneous
  Country: CA (occurrence: CA)
  Receive Date: 20220901
  Receipt Date: 20220901
  Transmission Date: 20221026
  Serious: Yes (Life-Threatening, Hospitalization, Other)
  Sender: FDA-Public Use
  Company Number: CA-PFIZER INC-202201107434

PATIENT
  Age: 55 Year
  Sex: Female
  Weight: 52 kg

DRUGS (3)
  1. PHENYTOIN SODIUM [Interacting]
     Active Substance: PHENYTOIN SODIUM
     Indication: Seizure
     Dosage: 300 MG, 1X/DAY
     Route: 048
  2. FLUCONAZOLE [Interacting]
     Active Substance: FLUCONAZOLE
     Indication: Oesophageal candidiasis
     Dosage: 200 MG, 1X/DAY
     Route: 048
  3. FOLIC ACID [Concomitant]
     Active Substance: FOLIC ACID
     Dosage: UNK

REACTIONS (7)
  - Ataxia [Recovering/Resolving]
  - Diplopia [Recovering/Resolving]
  - Drug interaction [Recovering/Resolving]
  - Dysarthria [Recovering/Resolving]
  - Facial paralysis [Recovering/Resolving]
  - Muscular weakness [Recovering/Resolving]
  - Nystagmus [Recovering/Resolving]
